FAERS Safety Report 10090598 (Version 2)
Quarter: 2014Q2

REPORT INFORMATION
  Report Type: Spontaneous
  Country: US (occurrence: US)
  Receive Date: 20140421
  Receipt Date: 20140512
  Transmission Date: 20141212
  Serious: Yes (Hospitalization)
  Sender: FDA-Public Use
  Company Number: US-BAYER-2014-056884

PATIENT
  Age: 34 Year
  Sex: Female
  Weight: 93.42 kg

DRUGS (12)
  1. OCELLA [Suspect]
  2. TAMIFLU [Concomitant]
  3. AMITRIPTYLINE HCL [Concomitant]
     Route: 048
  4. LIDOCAINE [Concomitant]
  5. MELOXICAM [Concomitant]
  6. DOXYCYCLINE HYCLATE [Concomitant]
     Dosage: 100 MG, UNK
     Route: 048
     Dates: start: 20090915
  7. CITALOPRAM [Concomitant]
     Dosage: 20 MG, UNK
     Route: 048
     Dates: start: 20091002
  8. METRONIDAZOLE [Concomitant]
     Dosage: 500 MG, UNK
     Route: 048
     Dates: start: 20090915, end: 20091008
  9. OMEPRAZOLE [Concomitant]
     Dosage: 20 MG, UNK
     Route: 048
     Dates: start: 20091012, end: 20091114
  10. METHOCARBAMOL [Concomitant]
     Dosage: 750 MG, UNK
     Route: 048
     Dates: start: 20090915, end: 20091121
  11. AZITHROMYCIN [Concomitant]
     Dosage: 250 MG, UNK
     Route: 048
     Dates: start: 20091127
  12. MOTRIN [Concomitant]

REACTIONS (5)
  - Cerebral haemorrhage [None]
  - Haemorrhagic transformation stroke [None]
  - Cerebral infarction [None]
  - Deep vein thrombosis [None]
  - Cerebral artery embolism [None]
